FAERS Safety Report 18618765 (Version 1)
Quarter: 2020Q4

REPORT INFORMATION
  Report Type: Spontaneous
  Country: GB (occurrence: GB)
  Receive Date: 20201215
  Receipt Date: 20201215
  Transmission Date: 20210114
  Serious: Yes (Other)
  Sender: FDA-Public Use
  Company Number: GB-TEVA-2020-GB-1857371

PATIENT
  Age: 85 Year
  Sex: Male
  Weight: 76 kg

DRUGS (15)
  1. FOSTAIR [Concomitant]
     Active Substance: BECLOMETHASONE\FORMOTEROL
     Dosage: PUFF, VIA SPACER , UNIT DOSE : 4 DF
     Route: 055
     Dates: start: 20190820
  2. PARACETAMOL [Concomitant]
     Active Substance: ACETAMINOPHEN
     Dosage: AS REQUIRED , UNIT DOSE : 8 DF
     Dates: start: 20190820
  3. TRIMETHOPRIM. [Concomitant]
     Active Substance: TRIMETHOPRIM
     Dosage: UNIT DOSE : 2 DF
     Dates: start: 20201116
  4. AMANTADINE HYDROCHLORIDE. [Concomitant]
     Active Substance: AMANTADINE HYDROCHLORIDE
     Dosage: UNIT DOSE :  2 DF
     Dates: start: 20190820
  5. MADOPAR [Concomitant]
     Active Substance: BENSERAZIDE HYDROCHLORIDE\LEVODOPA
     Dosage: 6AM,10AM, 2PM., UNIT DOSE :  8 DF
     Dates: start: 20190820
  6. IPINNIA XL [Concomitant]
     Dosage: 1 DOSAGE FORMS DAILY; IN THE EVENING
     Dates: start: 20190820
  7. FUROSEMIDE. [Concomitant]
     Active Substance: FUROSEMIDE
     Dosage: 1 DOSAGE FORMS DAILY; IN THE MORNING
     Dates: start: 20200226
  8. CASSIA [Concomitant]
     Dosage: ONE OR TWO, AT NIGHT
     Dates: start: 20190820
  9. LAXIDO [Concomitant]
     Active Substance: POLYETHYLENE GLYCOL 3350\POTASSIUM CHLORIDE\SODIUM BICARBONATE\SODIUM CHLORIDE
     Dosage: WHEN REQUIRED , UNIT DOSE : 2 DF
     Dates: start: 20190820
  10. CLONAZEPAM. [Concomitant]
     Active Substance: CLONAZEPAM
     Dosage: 125 MICROGRAM DAILY; AT NIGHT
     Dates: start: 20190820
  11. CALCI-D [Concomitant]
     Active Substance: CALCIUM CARBONATE\CHOLECALCIFEROL
     Dosage: UNIT DOSE : 1 DF
     Dates: start: 20190820
  12. NITROFURANTOIN. [Suspect]
     Active Substance: NITROFURANTOIN
     Dosage: UNIT DOSE :  200 MG
     Route: 048
     Dates: start: 20201116
  13. ASACOL [Concomitant]
     Active Substance: MESALAMINE
     Dosage: 1 DOSAGE FORMS DAILY; INSERT AT NIGHT. WHEN NEEDED
     Dates: start: 20190820, end: 20200902
  14. FELODIPINE. [Concomitant]
     Active Substance: FELODIPINE
     Dosage: 1 DOSAGE FORMS DAILY; IN THE MORNING
     Dates: start: 20190820
  15. DIHYDROCODEINE [Concomitant]
     Active Substance: DIHYDROCODEINE
     Dosage: TWICE A DAY OR AT NIGHT , UNIT DOSE :  1 DF
     Dates: start: 20190820

REACTIONS (1)
  - Aggression [Recovered/Resolved]

NARRATIVE: CASE EVENT DATE: 20201116
